FAERS Safety Report 9262315 (Version 1)
Quarter: 2013Q2

REPORT INFORMATION
  Report Type: Spontaneous
  Country: US (occurrence: None)
  Receive Date: 20130425
  Receipt Date: 20130425
  Transmission Date: 20140414
  Serious: Yes (Hospitalization)
  Sender: FDA-Public Use
  Company Number: None

PATIENT
  Age: 58 Year
  Sex: Female
  Weight: 60 kg

DRUGS (11)
  1. CYCLOBENZAPRINE [Suspect]
     Indication: BACK PAIN
     Route: 048
     Dates: start: 201110, end: 20121011
  2. PAROXETINE [Concomitant]
  3. FENTANYL PATCH [Concomitant]
  4. FOLIC ACID [Concomitant]
  5. GABAPENTIN [Concomitant]
  6. HYDROMORPHONE [Concomitant]
  7. IMATINIB [Concomitant]
  8. OMEPRAZOLE [Concomitant]
  9. PROCHLORPERAZINE [Concomitant]
  10. TRAZODONE [Concomitant]
  11. ZOLMITRIPTAN [Concomitant]

REACTIONS (7)
  - Dyspnoea [None]
  - Chest discomfort [None]
  - Dysphagia [None]
  - Anxiety [None]
  - Hypersensitivity [None]
  - Hyperreflexia [None]
  - Skin tightness [None]
